FAERS Safety Report 13258999 (Version 1)
Quarter: 2017Q1

REPORT INFORMATION
  Report Type: Spontaneous
  Country: US (occurrence: US)
  Receive Date: 20170221
  Receipt Date: 20170221
  Transmission Date: 20170428
  Serious: No
  Sender: FDA-Public Use
  Company Number: None

PATIENT
  Age: 60 Year
  Sex: Male
  Weight: 108.5 kg

DRUGS (1)
  1. BRIMONIDINE/BRINZOLAMIDE [Suspect]
     Active Substance: BRIMONIDINE TARTRATE\BRINZOLAMIDE
     Indication: GLAUCOMA
     Dosage: 0.2/1% DROPS OTHER EYE
     Route: 047
     Dates: start: 20160804, end: 20161129

REACTIONS (2)
  - Conjunctivitis [None]
  - Vision blurred [None]

NARRATIVE: CASE EVENT DATE: 20161129
